FAERS Safety Report 8510318-9 (Version None)
Quarter: 2012Q3

REPORT INFORMATION
  Report Type: 
  Country: None (occurrence: None)
  Receive Date: 20120713
  Receipt Date: 20120710
  Transmission Date: 20120928
  Serious: No
  Sender: FDA-Public Use
  Company Number: US-009507513-1207USA002477

PATIENT

DRUGS (1)
  1. PEG-INTRON [Suspect]
     Dosage: UNK UNK, UNKNOWN
     Route: 058
     Dates: start: 20120706

REACTIONS (1)
  - COUGH [None]
